FAERS Safety Report 20092475 (Version 1)
Quarter: 2021Q4

REPORT INFORMATION
  Report Type: Spontaneous
  Country: GB (occurrence: GB)
  Receive Date: 20211119
  Receipt Date: 20211119
  Transmission Date: 20220303
  Serious: No
  Sender: FDA-Public Use
  Company Number: GB-PFIZER INC-202101054763

PATIENT
  Age: 65 Year
  Sex: Male

DRUGS (1)
  1. ENBREL [Suspect]
     Active Substance: ETANERCEPT
     Indication: Rheumatoid arthritis
     Dosage: 50 MG/ML, WEEKLY
     Dates: start: 20060403

REACTIONS (3)
  - Needle issue [Unknown]
  - Device issue [Unknown]
  - Injection site haemorrhage [Unknown]
